FAERS Safety Report 11366250 (Version 1)
Quarter: 2015Q3

REPORT INFORMATION
  Report Type: Spontaneous
  Country: NL (occurrence: NL)
  Receive Date: 20150811
  Receipt Date: 20150811
  Transmission Date: 20151125
  Serious: Yes (Death, Life-Threatening, Hospitalization, Other)
  Sender: FDA-Public Use
  Company Number: NL-GILEAD-2015-0166592

PATIENT
  Age: 63 Year
  Sex: Male

DRUGS (6)
  1. QUETIAPINE [Concomitant]
     Active Substance: QUETIAPINE
     Dosage: 50 MG, QD
     Route: 065
  2. SOVALDI [Suspect]
     Active Substance: SOFOSBUVIR
     Indication: CHRONIC HEPATITIS C
     Dosage: 400 MG, QD
     Route: 065
     Dates: start: 20150403, end: 20150619
  3. VENLAFAXINE [Concomitant]
     Active Substance: VENLAFAXINE HYDROCHLORIDE
     Dosage: 37.5 MG, QD
     Route: 065
  4. PANTOPRAZOLE SODIUM. [Concomitant]
     Active Substance: PANTOPRAZOLE SODIUM
     Dosage: 40 MG, QD
     Route: 065
  5. TAMSULOSINE [Concomitant]
     Active Substance: TAMSULOSIN HYDROCHLORIDE
     Dosage: 0.4 MG, QD
     Route: 065
  6. RIBAVIRINE [Concomitant]
     Active Substance: RIBAVIRIN
     Indication: CHRONIC HEPATITIS C
     Dosage: 600 MG, BID
     Route: 065
     Dates: start: 20150403, end: 20150618

REACTIONS (6)
  - Respiratory failure [Not Recovered/Not Resolved]
  - Oesophageal varices haemorrhage [Not Recovered/Not Resolved]
  - Hepatic encephalopathy [Not Recovered/Not Resolved]
  - Ascites [Not Recovered/Not Resolved]
  - Hepatic cirrhosis [Fatal]
  - Restlessness [Not Recovered/Not Resolved]

NARRATIVE: CASE EVENT DATE: 2015
